FAERS Safety Report 5902285-9 (Version None)
Quarter: 2008Q3

REPORT INFORMATION
  Report Type: 
  Country: None (occurrence: None)
  Receive Date: 20080929
  Receipt Date: 20080812
  Transmission Date: 20090109
  Serious: No
  Sender: FDA-Public Use
  Company Number: US-BAUSCH-2008BL003518

PATIENT
  Age: 58 Year
  Sex: Female

DRUGS (4)
  1. ALAWAY [Suspect]
     Indication: EYE ALLERGY
     Route: 047
     Dates: start: 20080809, end: 20080809
  2. ALAWAY [Suspect]
     Indication: EYE PRURITUS
     Route: 047
     Dates: start: 20080809, end: 20080809
  3. FOLATE SODIUM [Concomitant]
  4. VITAMIN B-12 [Concomitant]

REACTIONS (2)
  - EYE IRRITATION [None]
  - MEDICATION ERROR [None]
